FAERS Safety Report 17235899 (Version 1)
Quarter: 2020Q1

REPORT INFORMATION
  Report Type: Spontaneous
  Country: GB (occurrence: GB)
  Receive Date: 20200106
  Receipt Date: 20200106
  Transmission Date: 20200409
  Serious: Yes (Other)
  Sender: FDA-Public Use
  Company Number: GB-JNJFOC-20200101754

PATIENT
  Age: 26 Year
  Sex: Female
  Weight: 83.91 kg

DRUGS (2)
  1. LEMSIP COLD + FLU                  /00312001/ [Concomitant]
     Indication: PRODUCT USED FOR UNKNOWN INDICATION
     Route: 065
  2. SUDAFED [Suspect]
     Active Substance: PSEUDOEPHEDRINE HYDROCHLORIDE
     Indication: NASAL CONGESTION
     Dosage: 1 EVERY 4-6 HOURS.
     Route: 048
     Dates: start: 20191216, end: 20191218

REACTIONS (4)
  - Lip dry [Unknown]
  - Headache [Recovering/Resolving]
  - Dysgeusia [Unknown]
  - Dry mouth [Recovering/Resolving]

NARRATIVE: CASE EVENT DATE: 20191216
